FAERS Safety Report 7472170-2 (Version None)
Quarter: 2011Q2

REPORT INFORMATION
  Report Type: 
  Country: None (occurrence: None)
  Receive Date: 20110511
  Receipt Date: 20110218
  Transmission Date: 20111010
  Serious: No
  Sender: FDA-Public Use
  Company Number: A0914446A

PATIENT
  Age: 51 Year
  Sex: Female

DRUGS (6)
  1. STEROID [Concomitant]
     Route: 048
  2. UNSPECIFIED MEDICATION [Concomitant]
     Indication: GASTRIC DISORDER
  3. TYKERB [Suspect]
     Indication: BRAIN NEOPLASM
     Dosage: 4TAB PER DAY
     Route: 048
     Dates: start: 20110214
  4. VITAMIN TAB [Concomitant]
  5. HIGH BLOOD PRESSURE PILL [Concomitant]
  6. CALCIUM [Concomitant]

REACTIONS (2)
  - DIARRHOEA [None]
  - DYSPEPSIA [None]
